FAERS Safety Report 15631819 (Version 1)
Quarter: 2018Q4

REPORT INFORMATION
  Report Type: Spontaneous
  Country: US (occurrence: US)
  Receive Date: 20181112
  Receipt Date: 20181112
  Transmission Date: 20190205
  Serious: No
  Sender: FDA-Public Use
  Company Number: None

PATIENT
  Age: 30 Year
  Sex: Female

DRUGS (1)
  1. BOTOX TOXIN TYPE A [Suspect]
     Active Substance: ONABOTULINUMTOXINA
     Indication: MIGRAINE WITH AURA
     Dosage: OTHER DOSE:155 UNITS;OTHER FREQUENCY:EVERY 3 MONTHS;?
     Route: 030
     Dates: start: 20180517

REACTIONS (2)
  - Eyelid disorder [None]
  - Wrong technique in device usage process [None]

NARRATIVE: CASE EVENT DATE: 20180525
